FAERS Safety Report 4380637-9 (Version None)
Quarter: 2004Q2

REPORT INFORMATION
  Report Type: 
  Country: None (occurrence: None)
  Receive Date: 20040616
  Receipt Date: 20040527
  Transmission Date: 20050107
  Serious: Yes (Hospitalization)
  Sender: FDA-Public Use
  Company Number: 6009019

PATIENT
  Age: 77 Year
  Sex: Male

DRUGS (7)
  1. BISOPROLOL FUMARATE [Suspect]
     Indication: CARDIAC FAILURE CONGESTIVE
     Dosage: 10 MG (10, ORAL
     Route: 048
     Dates: start: 20030811
  2. ENALAPRIL MALEATE [Suspect]
     Indication: CARDIAC FAILURE CONGESTIVE
     Dosage: 20 MG (10 MG, 2 IN 1 DAY) ORAL
     Route: 048
     Dates: start: 20030604
  3. LANITOP (METILDIGOXIN) [Concomitant]
  4. LASIX [Concomitant]
  5. SPIRINE [Concomitant]
  6. MARCUMAR [Concomitant]
  7. SIMVASTATIN [Concomitant]

REACTIONS (2)
  - ANGINA PECTORIS [None]
  - DYSPNOEA [None]
